FAERS Safety Report 10210611 (Version 1)
Quarter: 2014Q2

REPORT INFORMATION
  Report Type: Spontaneous
  Country: US (occurrence: None)
  Receive Date: 20140529
  Receipt Date: 20140529
  Transmission Date: 20141212
  Serious: Yes (Hospitalization)
  Sender: FDA-Public Use
  Company Number: None

PATIENT
  Age: 80 Year
  Sex: Male
  Weight: 100.6 kg

DRUGS (2)
  1. LABETALOL [Suspect]
     Indication: HYPERTENSION
     Route: 048
     Dates: start: 20090924, end: 20140423
  2. NIFEDIPINE [Suspect]
     Indication: HYPERTENSION
     Dosage: 90 MG, EVERY DAY, PO
     Route: 048
     Dates: start: 20140115

REACTIONS (4)
  - Sinus bradycardia [None]
  - Overdose [None]
  - Hypotension [None]
  - Dizziness [None]
